FAERS Safety Report 6550600-8 (Version None)
Quarter: 2010Q1

REPORT INFORMATION
  Report Type: 
  Country: None (occurrence: None)
  Receive Date: 20100125
  Receipt Date: 20100119
  Transmission Date: 20100710
  Serious: Yes (Hospitalization)
  Sender: FDA-Public Use
  Company Number: GB-SANOFI-AVENTIS-2010SA003762

PATIENT
  Age: 66 Year
  Sex: Female

DRUGS (2)
  1. LANTUS [Suspect]
     Indication: DIABETES MELLITUS
  2. OPTICLICK [Suspect]

REACTIONS (3)
  - CARDIAC FAILURE [None]
  - FATIGUE [None]
  - RENAL FAILURE [None]
